FAERS Safety Report 8499958-3 (Version None)
Quarter: 2012Q3

REPORT INFORMATION
  Report Type: 
  Country: None (occurrence: None)
  Receive Date: 20120710
  Receipt Date: 20120627
  Transmission Date: 20120928
  Serious: Yes (Other)
  Sender: FDA-Public Use
  Company Number: PL-ELI_LILLY_AND_COMPANY-PL201207000897

PATIENT
  Sex: Male
  Weight: 70 kg

DRUGS (1)
  1. OLANZAPINE [Suspect]
     Indication: SCHIZOPHRENIA
     Dosage: 300 MG, UNKNOWN
     Route: 030
     Dates: start: 20120622

REACTIONS (6)
  - ALTERED STATE OF CONSCIOUSNESS [None]
  - FEELING DRUNK [None]
  - BODY TEMPERATURE INCREASED [None]
  - ASTHENIA [None]
  - GAIT DISTURBANCE [None]
  - HYPERHIDROSIS [None]
